FAERS Safety Report 13550529 (Version 6)
Quarter: 2023Q1

REPORT INFORMATION
  Report Type: Other
  Country: CA (occurrence: None)
  Receive Date: 20170516
  Receipt Date: 20230313
  Transmission Date: 20230418
  Serious: Yes (Other)
  Sender: FDA-Public Use
  Company Number: CA-ROCHE-1932390

PATIENT
  Age: 31 Year
  Sex: Female

DRUGS (35)
  1. DIAZEPAM [Suspect]
     Active Substance: DIAZEPAM
     Indication: Status epilepticus
     Route: 065
  2. DIAZEPAM [Suspect]
     Active Substance: DIAZEPAM
     Indication: Seizure
     Route: 065
  3. MIDAZOLAM [Suspect]
     Active Substance: MIDAZOLAM
     Indication: Status epilepticus
     Route: 065
  4. MIDAZOLAM [Suspect]
     Active Substance: MIDAZOLAM
     Indication: Seizure
  5. THIOPENTAL SODIUM [Suspect]
     Active Substance: THIOPENTAL SODIUM
     Indication: Status epilepticus
     Route: 042
  6. THIOPENTAL SODIUM [Suspect]
     Active Substance: THIOPENTAL SODIUM
     Indication: Endotracheal intubation
     Route: 042
  7. THIOPENTAL SODIUM [Suspect]
     Active Substance: THIOPENTAL SODIUM
     Route: 042
  8. THIOPENTAL SODIUM [Suspect]
     Active Substance: THIOPENTAL SODIUM
     Route: 042
  9. THIOPENTAL SODIUM [Suspect]
     Active Substance: THIOPENTAL SODIUM
     Route: 042
  10. THIOPENTAL SODIUM [Suspect]
     Active Substance: THIOPENTAL SODIUM
     Route: 042
  11. THIOPENTAL SODIUM [Suspect]
     Active Substance: THIOPENTAL SODIUM
     Route: 042
  12. THIOPENTAL SODIUM [Suspect]
     Active Substance: THIOPENTAL SODIUM
     Route: 042
  13. THIOPENTAL SODIUM [Suspect]
     Active Substance: THIOPENTAL SODIUM
     Route: 042
  14. THIOPENTAL SODIUM [Suspect]
     Active Substance: THIOPENTAL SODIUM
     Route: 042
  15. PROPOFOL [Suspect]
     Active Substance: PROPOFOL
     Indication: Status epilepticus
     Route: 042
  16. PROPOFOL [Suspect]
     Active Substance: PROPOFOL
     Route: 048
  17. PROPOFOL [Suspect]
     Active Substance: PROPOFOL
     Route: 042
  18. PROPOFOL [Suspect]
     Active Substance: PROPOFOL
     Dosage: EMULSION FOR INJECTION
     Route: 042
  19. PROPOFOL [Suspect]
     Active Substance: PROPOFOL
     Dosage: EMULSION
     Route: 065
  20. PROPOFOL [Suspect]
     Active Substance: PROPOFOL
     Route: 042
  21. PROPOFOL [Suspect]
     Active Substance: PROPOFOL
     Route: 042
  22. DIPHENYLHYDANTOIN [Suspect]
     Active Substance: PHENYTOIN
     Indication: Status epilepticus
     Route: 065
  23. SUCCINYLCHOLINE CHLORIDE [Suspect]
     Active Substance: SUCCINYLCHOLINE CHLORIDE
     Indication: Endotracheal intubation
     Route: 042
  24. SUCCINYLCHOLINE CHLORIDE [Suspect]
     Active Substance: SUCCINYLCHOLINE CHLORIDE
     Route: 042
  25. MAGNESIUM SULFATE [Suspect]
     Active Substance: MAGNESIUM SULFATE
     Indication: Status epilepticus
     Dosage: 2 DOSES
     Route: 065
  26. DEXTROSE [Suspect]
     Active Substance: DEXTROSE
     Indication: Product used for unknown indication
     Dosage: 50% SOLUTION
     Route: 042
  27. METOCLOPRAMIDE HYDROCHLORIDE [Suspect]
     Active Substance: METOCLOPRAMIDE HYDROCHLORIDE
     Indication: Prophylaxis
     Route: 042
  28. PAROXETINE HYDROCHLORIDE [Suspect]
     Active Substance: PAROXETINE HYDROCHLORIDE
     Indication: Bipolar disorder
     Route: 065
  29. SODIUM CITRATE [Suspect]
     Active Substance: SODIUM CITRATE
     Indication: Prophylaxis
     Route: 048
  30. ATIVAN [Suspect]
     Active Substance: LORAZEPAM
     Indication: Bipolar disorder
     Route: 065
  31. LORAZEPAM [Suspect]
     Active Substance: LORAZEPAM
     Indication: Status epilepticus
     Route: 065
  32. DOPAMINE HYDROCHLORIDE [Suspect]
     Active Substance: DOPAMINE HYDROCHLORIDE
     Indication: Hypotension
     Dosage: 4-10 UG/KG/MIN?3.2MG/ML DEXTROSE 5% INJ
     Route: 042
  33. PHENYLEPHRINE [Suspect]
     Active Substance: PHENYLEPHRINE HYDROCHLORIDE
     Indication: Hypotension
     Route: 047
  34. PHENYTOIN [Suspect]
     Active Substance: PHENYTOIN
     Indication: Seizure
     Route: 065
  35. CALCIUM CHLORIDE [Suspect]
     Active Substance: CALCIUM CHLORIDE
     Indication: Product used for unknown indication
     Route: 065

REACTIONS (22)
  - Foetal death [Unknown]
  - Diabetes insipidus [Unknown]
  - Hypotension [Recovering/Resolving]
  - Left ventricular dysfunction [Recovering/Resolving]
  - Renal impairment [Unknown]
  - Renal ischaemia [Unknown]
  - Encephalopathy [Recovering/Resolving]
  - Blood pH decreased [Unknown]
  - PCO2 increased [Unknown]
  - PO2 increased [Unknown]
  - Blood bicarbonate decreased [Unknown]
  - Blood magnesium decreased [Unknown]
  - Blood calcium decreased [Unknown]
  - Loss of consciousness [Recovered/Resolved]
  - Off label use [Unknown]
  - Oxygen saturation abnormal [Unknown]
  - Maternal exposure during pregnancy [Unknown]
  - Clonus [Unknown]
  - Seizure [Unknown]
  - Status epilepticus [Unknown]
  - Drug ineffective [Unknown]
  - Electroencephalogram abnormal [Unknown]
